FAERS Safety Report 21594990 (Version 2)
Quarter: 2022Q4

REPORT INFORMATION
  Report Type: Spontaneous
  Country: EG (occurrence: EG)
  Receive Date: 20221115
  Receipt Date: 20221124
  Transmission Date: 20230113
  Serious: Yes (Hospitalization, Disabling, Other)
  Sender: FDA-Public Use
  Company Number: EG-NOVOPROD-978597

PATIENT
  Age: 55 Year
  Sex: Female

DRUGS (2)
  1. INSULIN HUMAN [Suspect]
     Active Substance: INSULIN HUMAN
     Indication: Diabetes mellitus
     Dosage: 40 IU, QD
     Route: 058
  2. ZANOGLIDE [Concomitant]
     Indication: Diabetes mellitus
     Dosage: STARTED FROM MORE THAN 4-5 YEARS ONE TABLET PER DAY

REACTIONS (4)
  - Limb injury [Not Recovered/Not Resolved]
  - Gangrene [Not Recovered/Not Resolved]
  - Finger amputation [Unknown]
  - Hyperglycaemia [Not Recovered/Not Resolved]
